FAERS Safety Report 19679039 (Version 1)
Quarter: 2021Q3

REPORT INFORMATION
  Report Type: Spontaneous
  Country: US (occurrence: US)
  Receive Date: 20210809
  Receipt Date: 20210809
  Transmission Date: 20211014
  Serious: Yes (Death)
  Sender: FDA-Public Use
  Company Number: None

PATIENT
  Age: 40 Year
  Sex: Female

DRUGS (1)
  1. TACROLIMUS 1 MG [Suspect]
     Active Substance: TACROLIMUS
     Indication: RENAL TRANSPLANT
     Dosage: 2C QAM / 1C QPM; BID PO?
     Route: 048
     Dates: start: 20050508, end: 20210804

REACTIONS (1)
  - Nephropathy [None]

NARRATIVE: CASE EVENT DATE: 20210804
